FAERS Safety Report 9335970 (Version 1)
Quarter: 2013Q2

REPORT INFORMATION
  Report Type: Spontaneous
  Country: US (occurrence: US)
  Receive Date: 20130606
  Receipt Date: 20130606
  Transmission Date: 20140414
  Serious: No
  Sender: FDA-Public Use
  Company Number: US-ASTRAZENECA-2011SE14643

PATIENT
  Age: 47 Year
  Sex: Female

DRUGS (2)
  1. NEXIUM [Suspect]
     Indication: OESOPHAGEAL PERFORATION
     Route: 048
  2. NEXIUM [Suspect]
     Indication: ULCER
     Route: 048

REACTIONS (6)
  - Nervous system disorder [Unknown]
  - Oesophageal perforation [Unknown]
  - Gastric ulcer [Unknown]
  - Abdominal discomfort [Unknown]
  - Malaise [Unknown]
  - Drug dose omission [Unknown]
